FAERS Safety Report 16956368 (Version 1)
Quarter: 2019Q4

REPORT INFORMATION
  Report Type: Spontaneous
  Country: US (occurrence: US)
  Receive Date: 20190905
  Receipt Date: 20190905
  Transmission Date: 20200122
  Serious: Yes (Death)
  Sender: FDA-Public Use
  Company Number: None

PATIENT
  Age: 73 Year
  Sex: Female

DRUGS (1)
  1. IMATINIB MESYLATE 100MG [Suspect]
     Active Substance: IMATINIB MESYLATE
     Indication: SKIN CANCER
     Route: 048
     Dates: start: 20190723

REACTIONS (1)
  - Death [None]
